FAERS Safety Report 8513192-X (Version None)
Quarter: 2012Q3

REPORT INFORMATION
  Report Type: 
  Country: None (occurrence: None)
  Receive Date: 20120716
  Receipt Date: 20120712
  Transmission Date: 20120928
  Serious: Yes (Death)
  Sender: FDA-Public Use
  Company Number: US-CELGENEUS-163-21880-12071265

PATIENT
  Sex: Male

DRUGS (9)
  1. METFORMIN HYDROCHLORIDE [Concomitant]
     Dosage: 500 MILLIGRAM
     Route: 048
  2. ZOFRAN [Concomitant]
     Dosage: 4 MILLIGRAM
     Route: 048
  3. LEVAQUIN [Concomitant]
     Dosage: 500 MILLIGRAM
     Route: 048
  4. SIMVASTATIN [Concomitant]
     Dosage: 20 MILLIGRAM
     Route: 048
  5. ACYCLOVIR [Concomitant]
     Dosage: 400 MILLIGRAM
     Route: 048
  6. REVLIMID [Suspect]
     Indication: MULTIPLE MYELOMA
     Dosage: 25 MILLIGRAM
     Route: 048
     Dates: start: 20120612
  7. BOOST HI-PRO [Concomitant]
     Route: 048
  8. DYAZIDE [Concomitant]
     Dosage: 37.5-25
     Route: 048
  9. LASIX [Concomitant]
     Dosage: 40 MILLIGRAM
     Route: 048

REACTIONS (1)
  - DEATH [None]
